FAERS Safety Report 15269734 (Version 1)
Quarter: 2018Q3

REPORT INFORMATION
  Report Type: Spontaneous
  Country: FR (occurrence: FR)
  Receive Date: 20180813
  Receipt Date: 20180813
  Transmission Date: 20181010
  Serious: Yes (Other)
  Sender: FDA-Public Use
  Company Number: FR-ROCHE-2169003

PATIENT
  Age: 76 Year
  Sex: Male
  Weight: 86 kg

DRUGS (7)
  1. METHOTREXATE. [Suspect]
     Active Substance: METHOTREXATE
     Dosage: 4 PL MTX
     Route: 037
     Dates: start: 20170518, end: 20170731
  2. VINDESINE SULFATE [Suspect]
     Active Substance: VINDESINE SULFATE
     Indication: BURKITT^S LYMPHOMA
     Dosage: 1 CYCLE
     Route: 041
     Dates: start: 20170602, end: 20170602
  3. VINCRISTINE SULFATE. [Suspect]
     Active Substance: VINCRISTINE SULFATE
     Indication: LYMPHOMA
     Route: 041
     Dates: start: 20060717, end: 20170728
  4. MABTHERA [Suspect]
     Active Substance: RITUXIMAB
     Indication: LYMPHOMA
     Route: 041
     Dates: start: 20060717, end: 20170728
  5. CYCLOPHOSPHAMIDE. [Suspect]
     Active Substance: CYCLOPHOSPHAMIDE
     Indication: LYMPHOMA
     Route: 041
     Dates: start: 20060717, end: 20170728
  6. METHOTREXATE. [Suspect]
     Active Substance: METHOTREXATE
     Indication: BURKITT^S LYMPHOMA
     Dosage: 2 CYCLES
     Route: 041
     Dates: start: 20170831, end: 20170922
  7. DOXORUBICINE [Suspect]
     Active Substance: DOXORUBICIN
     Indication: LYMPHOMA
     Route: 041
     Dates: start: 20060717, end: 20170728

REACTIONS (1)
  - Refractory anaemia with an excess of blasts [Not Recovered/Not Resolved]

NARRATIVE: CASE EVENT DATE: 201807
